FAERS Safety Report 23978556 (Version 2)
Quarter: 2024Q3

REPORT INFORMATION
  Report Type: Spontaneous
  Country: FR (occurrence: FR)
  Receive Date: 20240614
  Receipt Date: 20240707
  Transmission Date: 20241016
  Serious: Yes (Death, Other)
  Sender: RECORDATI
  Company Number: FR-ORPHANEU-2024004301

PATIENT

DRUGS (2)
  1. SYLVANT [Suspect]
     Active Substance: SILTUXIMAB
     Indication: Castleman^s disease
     Dosage: 11 MILLIGRAM/KILOGRAM (680 MG), Q2W (EVERY 2 WEEKS) (FIRST ONE/COURSE)
     Route: 042
     Dates: start: 20240412
  2. SYLVANT [Suspect]
     Active Substance: SILTUXIMAB
     Dosage: 11 MILLIGRAM/KILOGRAM (680 MG), Q2W (EVERY 2 WEEKS) (SECOND ONE/COURSE)
     Route: 042
     Dates: start: 20240423

REACTIONS (4)
  - Acute respiratory distress syndrome [Fatal]
  - Septic shock [Fatal]
  - Pseudomonas infection [Unknown]
  - Off label use [Recovered/Resolved]

NARRATIVE: CASE EVENT DATE: 20240412
